FAERS Safety Report 19078051 (Version 1)
Quarter: 2021Q1

REPORT INFORMATION
  Report Type: Spontaneous
  Country: US (occurrence: US)
  Receive Date: 20210331
  Receipt Date: 20210331
  Transmission Date: 20210420
  Serious: Yes (Disabling)
  Sender: FDA-Public Use
  Company Number: None

PATIENT
  Age: 33 Year
  Sex: Female
  Weight: 110.25 kg

DRUGS (7)
  1. XHANCE [Suspect]
     Active Substance: FLUTICASONE PROPIONATE
     Indication: MULTIPLE ALLERGIES
     Dates: start: 20181111, end: 20210330
  2. ALLEGRA [Suspect]
     Active Substance: FEXOFENADINE HYDROCHLORIDE
     Indication: MULTIPLE ALLERGIES
     Dates: start: 20181111, end: 20210330
  3. ADDERALL XR [Concomitant]
     Active Substance: AMPHETAMINE ASPARTATE\AMPHETAMINE SULFATE\DEXTROAMPHETAMINE SACCHARATE\DEXTROAMPHETAMINE SULFATE
  4. MULTIVITAMIN [Concomitant]
     Active Substance: VITAMINS
  5. XHANCE [Suspect]
     Active Substance: FLUTICASONE PROPIONATE
     Indication: SINUSITIS
     Dates: start: 20181111, end: 20210330
  6. PROBIOTICS [Concomitant]
     Active Substance: PROBIOTICS NOS
  7. XHANCE [Suspect]
     Active Substance: FLUTICASONE PROPIONATE
     Indication: RHINITIS ALLERGIC
     Dates: start: 20181111, end: 20210330

REACTIONS (3)
  - Food craving [None]
  - Hunger [None]
  - Weight increased [None]

NARRATIVE: CASE EVENT DATE: 20210331
